FAERS Safety Report 9496362 (Version 4)
Quarter: 2013Q3

REPORT INFORMATION
  Report Type: Report from Study
  Country: US (occurrence: US)
  Receive Date: 20130904
  Receipt Date: 20130926
  Transmission Date: 20140515
  Serious: Yes (Hospitalization)
  Sender: FDA-Public Use
  Company Number: US-JNJFOC-20130900145

PATIENT
  Age: 16 Year
  Sex: Female
  Weight: 50.2 kg

DRUGS (10)
  1. REMICADE [Suspect]
     Indication: CROHN^S DISEASE
     Route: 042
  2. REMICADE [Suspect]
     Indication: CROHN^S DISEASE
     Route: 042
     Dates: start: 20120605
  3. REMICADE [Suspect]
     Indication: CROHN^S DISEASE
     Route: 042
     Dates: start: 20130903
  4. REMICADE [Suspect]
     Indication: CROHN^S DISEASE
     Route: 042
     Dates: start: 20130813
  5. FLORASTOR [Concomitant]
     Route: 065
  6. GABAPENTIN [Concomitant]
     Route: 065
  7. MELATONIN [Concomitant]
     Route: 065
  8. PREDNISONE [Concomitant]
     Indication: CROHN^S DISEASE
     Route: 065
  9. PROTONIX [Concomitant]
     Route: 065
  10. ZINC SULFATE [Concomitant]
     Route: 065

REACTIONS (3)
  - Gastroenteritis rotavirus [Recovered/Resolved]
  - Cryptosporidiosis infection [Recovered/Resolved]
  - Crohn^s disease [Recovered/Resolved]
